FAERS Safety Report 8445347-7 (Version None)
Quarter: 2012Q2

REPORT INFORMATION
  Report Type: 
  Country: None (occurrence: None)
  Receive Date: 20120618
  Receipt Date: 20120403
  Transmission Date: 20120825
  Serious: No
  Sender: FDA-Public Use
  Company Number: US-TEVA-327604USA

PATIENT
  Sex: Female
  Weight: 81.72 kg

DRUGS (2)
  1. FENTANYL-100 [Concomitant]
     Indication: PAIN
     Route: 062
     Dates: start: 20120201
  2. FENTORA [Suspect]
     Indication: PAIN
     Dosage: 1600 MICROGRAM;
     Route: 002
     Dates: start: 20120201, end: 20120307

REACTIONS (2)
  - OFF LABEL USE [None]
  - APPLICATION SITE PAIN [None]
